FAERS Safety Report 8576662-4 (Version None)
Quarter: 2012Q3

REPORT INFORMATION
  Report Type: 
  Country: None (occurrence: None)
  Receive Date: 20120807
  Receipt Date: 20120801
  Transmission Date: 20120928
  Serious: Yes (Hospitalization)
  Sender: FDA-Public Use
  Company Number: BE-PFIZER INC-2012188213

PATIENT
  Sex: Female
  Weight: 79 kg

DRUGS (3)
  1. CABERGOLINE [Concomitant]
     Indication: HYPERPROLACTINAEMIA
     Dosage: UNK
     Dates: start: 19950327
  2. LIPITOR [Concomitant]
     Indication: LIPID METABOLISM DISORDER
     Dosage: UNK
     Dates: start: 20010406
  3. GENOTROPIN [Suspect]
     Indication: GROWTH HORMONE DEFICIENCY
     Dosage: 0.4 MG, 7/WK
     Route: 058
     Dates: start: 19970428, end: 19980401

REACTIONS (1)
  - CATARACT [None]
